FAERS Safety Report 16690625 (Version 3)
Quarter: 2019Q4

REPORT INFORMATION
  Report Type: Report from Study
  Country: US (occurrence: US)
  Receive Date: 20190810
  Receipt Date: 20191014
  Transmission Date: 20200122
  Serious: Yes (Other)
  Sender: FDA-Public Use
  Company Number: US-B.I. PHARMACEUTICALS,INC./RIDGEFIELD-2019-BI-032946

PATIENT
  Sex: Female

DRUGS (1)
  1. OFEV [Suspect]
     Active Substance: NINTEDANIB
     Indication: IDIOPATHIC PULMONARY FIBROSIS
     Dosage: TAKE 1 CAPSULE (150 MG) BY MOUTH TWICE A DAY , 12 HOURS APART WITH FOOD
     Route: 048
     Dates: start: 20190716, end: 20190912

REACTIONS (2)
  - Knee operation [Unknown]
  - Diarrhoea [Unknown]
